FAERS Safety Report 10939953 (Version 2)
Quarter: 2015Q2

REPORT INFORMATION
  Report Type: Spontaneous
  Country: US (occurrence: US)
  Receive Date: 20150322
  Receipt Date: 20150526
  Transmission Date: 20150821
  Serious: No
  Sender: FDA-Public Use
  Company Number: US-JNJFOC-20140505359

PATIENT
  Sex: Male

DRUGS (1)
  1. RISPERDAL [Suspect]
     Active Substance: RISPERIDONE
     Indication: AUTISM
     Route: 048
     Dates: start: 2006, end: 2008

REACTIONS (5)
  - Abnormal weight gain [Not Recovered/Not Resolved]
  - Emotional disorder [Unknown]
  - Gynaecomastia [Unknown]
  - Agitation [Unknown]
  - Musculoskeletal stiffness [Unknown]
